FAERS Safety Report 19358698 (Version 1)
Quarter: 2021Q2

REPORT INFORMATION
  Report Type: Report from Study
  Country: PA (occurrence: PA)
  Receive Date: 20210601
  Receipt Date: 20210601
  Transmission Date: 20210717
  Serious: Yes (Other)
  Sender: FDA-Public Use
  Company Number: NVSC2021PA046472

PATIENT
  Age: 81 Year
  Sex: Female
  Weight: 53.9 kg

DRUGS (7)
  1. INDAPAMIDE. [Concomitant]
     Active Substance: INDAPAMIDE
     Indication: BLOOD PRESSURE MEASUREMENT
     Dosage: 1.5 MG, (AT NIGHT)
     Route: 065
  2. FULVESTRANT. [Suspect]
     Active Substance: FULVESTRANT
     Indication: PRODUCT USED FOR UNKNOWN INDICATION
     Dosage: UNK
     Route: 065
  3. KISQALI [Suspect]
     Active Substance: RIBOCICLIB
     Dosage: 400 MG, QD, (2 TABLETS) (24 MAY)
     Route: 048
  4. KISQALI [Suspect]
     Active Substance: RIBOCICLIB
     Indication: BREAST CANCER METASTATIC
     Dosage: 400 MG, QD, (2 TABLETS)
     Route: 048
     Dates: start: 20210215
  5. KISQALI [Suspect]
     Active Substance: RIBOCICLIB
     Dosage: 400 MG, QD, (2 TABLETS)
     Route: 048
     Dates: start: 20210415, end: 20210505
  6. IRBESARTAN. [Suspect]
     Active Substance: IRBESARTAN
     Indication: BLOOD PRESSURE MEASUREMENT
     Dosage: 300 MG, (IN THE MORNING)
     Route: 065
  7. INSULIN [Concomitant]
     Active Substance: INSULIN NOS
     Indication: BLOOD PRESSURE MEASUREMENT
     Dosage: 20 ML, (IN THE MORNING)
     Route: 065

REACTIONS (17)
  - Neutrophil count decreased [Unknown]
  - Decreased immune responsiveness [Not Recovered/Not Resolved]
  - Conduction disorder [Unknown]
  - Haemoglobin decreased [Unknown]
  - Red blood cell count decreased [Unknown]
  - Incorrect dose administered [Recovering/Resolving]
  - Lymphocyte count abnormal [Unknown]
  - Reticulocyte count decreased [Unknown]
  - Haematocrit decreased [Unknown]
  - Eosinophil count abnormal [Unknown]
  - Monocyte count abnormal [Unknown]
  - Carbohydrate antigen 125 increased [Unknown]
  - Pain [Recovered/Resolved]
  - Diarrhoea [Unknown]
  - White blood cell count decreased [Unknown]
  - Carbohydrate antigen 15-3 increased [Unknown]
  - Basophil count increased [Unknown]

NARRATIVE: CASE EVENT DATE: 20210215
